FAERS Safety Report 6790504-9 (Version None)
Quarter: 2010Q2

REPORT INFORMATION
  Report Type: 
  Country: None (occurrence: None)
  Receive Date: 20100624
  Receipt Date: 20100611
  Transmission Date: 20101027
  Serious: Yes (Other)
  Sender: FDA-Public Use
  Company Number: PHHY2010RU17380

PATIENT
  Sex: Female

DRUGS (3)
  1. EXFORGE [Suspect]
     Indication: HYPERTENSION
     Dosage: 160/5 MG
     Route: 048
     Dates: start: 20090901
  2. EXFORGE [Suspect]
     Dosage: 80/5 MG BID
     Route: 048
     Dates: start: 20100418
  3. FLUCINAR [Suspect]
     Indication: THERAPEUTIC SKIN CARE TOPICAL

REACTIONS (6)
  - ADRENAL CYST [None]
  - BENIGN NEOPLASM OF ADRENAL GLAND [None]
  - BLOOD PRESSURE INCREASED [None]
  - DRUG INEFFECTIVE [None]
  - PRODUCT COUNTERFEIT [None]
  - RENAL CYST [None]
